FAERS Safety Report 5516814-0 (Version None)
Quarter: 2007Q4

REPORT INFORMATION
  Report Type: 
  Country: None (occurrence: None)
  Receive Date: 20071114
  Receipt Date: 20071031
  Transmission Date: 20080405
  Serious: Yes (Hospitalization, Disabling, Other)
  Sender: FDA-Public Use
  Company Number: GB-AMGEN-UK244713

PATIENT
  Sex: Female

DRUGS (42)
  1. NEULASTA [Suspect]
     Indication: CHEMOTHERAPY
     Route: 058
     Dates: start: 20070530
  2. CYCLOPHOSPHAMIDE [Concomitant]
     Dates: start: 20070530, end: 20070829
  3. DOXORUBICIN HYDROCHLORIDE [Concomitant]
     Dates: start: 20070530, end: 20070829
  4. VINCRISTINE [Concomitant]
     Dates: start: 20070530, end: 20070829
  5. PREDNISOLONE [Concomitant]
     Dates: start: 20070530, end: 20070829
  6. ABACAVIR [Concomitant]
     Dates: start: 20070501
  7. ACYCLOVIR [Concomitant]
     Route: 042
     Dates: start: 20070830
  8. AQUEOUS CREAM [Concomitant]
     Dates: start: 20070910
  9. AZITHROMYCIN [Concomitant]
  10. CHLORPHENIRAMINE TAB [Concomitant]
     Route: 042
     Dates: start: 20070910
  11. CYCLIZINE [Concomitant]
     Dates: start: 20070830
  12. DIAZEPAM [Concomitant]
     Dates: start: 20070601
  13. DIFFLAM [Concomitant]
     Dates: start: 20070910
  14. ENOXAPARIN SODIUM [Concomitant]
     Dates: start: 20070501
  15. FAMCICLOVIR [Concomitant]
     Dates: start: 20070907
  16. FLUCONAZOLE [Concomitant]
     Route: 042
     Dates: start: 20070905
  17. FOLINIC ACID [Concomitant]
     Dates: start: 20070601
  18. FUROSEMIDE [Concomitant]
     Dates: start: 20070601
  19. GENTAMICIN [Concomitant]
     Dates: start: 20070906
  20. IBUPROFEN [Concomitant]
     Dates: start: 20070906
  21. KALETRA [Concomitant]
     Route: 048
     Dates: start: 20070501
  22. LAMIVUDINE [Concomitant]
     Dates: start: 20070501
  23. LINEZOLID [Concomitant]
  24. MEROPENEM [Concomitant]
     Dates: start: 20070911
  25. METHADONE HCL [Concomitant]
     Dates: start: 20070909
  26. MIRTAZAPINE [Concomitant]
     Dates: start: 20070601
  27. MORPHINE [Concomitant]
     Route: 042
  28. MOVICOL [Concomitant]
     Dates: start: 20070601
  29. MUCAINE [Concomitant]
     Dates: start: 20070910
  30. NEORECORMON [Concomitant]
     Dates: start: 20070601
  31. NYSTATIN [Concomitant]
     Dates: start: 20070907
  32. ONDANSETRON [Concomitant]
     Dates: start: 20070601
  33. ORAMORPH SR [Concomitant]
     Dates: start: 20070909
  34. PARACETAMOL [Concomitant]
     Route: 042
     Dates: start: 20070905
  35. PARACETAMOL [Concomitant]
     Dates: start: 20070908
  36. PYRIDOXINE [Concomitant]
     Dates: start: 20070911
  37. RASBURICASE [Concomitant]
     Dates: start: 20070601
  38. TAZOCIN (LEDERLE) [Concomitant]
     Dates: start: 20070906
  39. TRAMADOL [Concomitant]
     Dates: start: 20070905
  40. VANCOMYCIN [Concomitant]
     Dates: start: 20070907
  41. ZOTON [Concomitant]
     Dates: start: 20070906
  42. COTRIM [Concomitant]

REACTIONS (12)
  - ACCIDENTAL OVERDOSE [None]
  - CANDIDIASIS [None]
  - DACTYLITIS [None]
  - MOUTH ULCERATION [None]
  - MUCOSAL INFLAMMATION [None]
  - NEUTROPENIA [None]
  - PALMAR-PLANTAR ERYTHRODYSAESTHESIA SYNDROME [None]
  - PARAESTHESIA [None]
  - PHARYNGOLARYNGEAL PAIN [None]
  - PRURITUS [None]
  - RASH MACULO-PAPULAR [None]
  - STAPHYLOCOCCAL INFECTION [None]
